FAERS Safety Report 8406237-9 (Version None)
Quarter: 2012Q2

REPORT INFORMATION
  Report Type: 
  Country: None (occurrence: None)
  Receive Date: 20120604
  Receipt Date: 20120523
  Transmission Date: 20120825
  Serious: Yes (Other)
  Sender: FDA-Public Use
  Company Number: PHHY2012BR046892

PATIENT
  Sex: Male

DRUGS (1)
  1. DIOVAN [Suspect]
     Dosage: 320 MG, UNK
     Dates: end: 20120522

REACTIONS (3)
  - DIABETES MELLITUS [None]
  - CARDIAC DISORDER [None]
  - HYPERTENSION [None]
